FAERS Safety Report 5303458-9 (Version None)
Quarter: 2007Q2

REPORT INFORMATION
  Report Type: 
  Country: None (occurrence: None)
  Receive Date: 20070420
  Receipt Date: 20070312
  Transmission Date: 20071010
  Serious: Yes (Other)
  Sender: FDA-Public Use
  Company Number: US-SANOFI-SYNTHELABO-A03200702246

PATIENT
  Sex: Male

DRUGS (4)
  1. ALCOHOL [Concomitant]
     Dosage: UNK
     Route: 065
  2. XANAX [Concomitant]
     Dosage: UNK
     Route: 065
  3. EFFEXOR [Concomitant]
     Dosage: UNK
     Route: 065
  4. AMBIEN [Suspect]
     Indication: INSOMNIA
     Dosage: 10 TO 20 MG UNK
     Route: 048
     Dates: start: 19990101, end: 20040101

REACTIONS (5)
  - ABNORMAL BEHAVIOUR [None]
  - AMNESIA [None]
  - CONVULSION [None]
  - SLEEP WALKING [None]
  - WEIGHT DECREASED [None]
